FAERS Safety Report 5126193-9 (Version None)
Quarter: 2006Q4

REPORT INFORMATION
  Report Type: 
  Country: None (occurrence: None)
  Receive Date: 20061012
  Receipt Date: 20060911
  Transmission Date: 20070319
  Serious: Yes (Death)
  Sender: FDA-Public Use
  Company Number: US-BOEHRINGER INGELHEIM PHARMACEUTICALS, INC.-2006-BP-10622RO

PATIENT
  Sex: Male

DRUGS (5)
  1. METHADONE HCL [Suspect]
     Dates: end: 20060301
  2. PEGASYS [Suspect]
     Indication: HEPATITIS C
     Dosage: 180 MCG/WEEK
     Route: 058
     Dates: start: 20050919, end: 20051101
  3. PEGASYS [Suspect]
     Route: 058
     Dates: start: 20060301, end: 20060322
  4. COPEGUS [Suspect]
     Indication: HEPATITIS C
     Dosage: 1000 MG/DAY
     Route: 048
     Dates: start: 20050919, end: 20051101
  5. COPEGUS [Suspect]
     Route: 048
     Dates: start: 20060301, end: 20060322

REACTIONS (1)
  - OVERDOSE [None]
